FAERS Safety Report 12717095 (Version 2)
Quarter: 2016Q4

REPORT INFORMATION
  Report Type: Spontaneous
  Country: US (occurrence: US)
  Receive Date: 20160906
  Receipt Date: 20161214
  Transmission Date: 20170207
  Serious: Yes (Life-Threatening, Hospitalization)
  Sender: FDA-Public Use
  Company Number: US-MYLANLABS-2016M1037477

PATIENT

DRUGS (2)
  1. LOPERAMIDE [Suspect]
     Active Substance: LOPERAMIDE
     Dosage: APPROXIMATELY 100 TABLETS A DAY OF 2 MG EACH, 2 DAYS BEFORE ADMISSION
     Route: 048
  2. LOPERAMIDE [Suspect]
     Active Substance: LOPERAMIDE
     Indication: IRRITABLE BOWEL SYNDROME
     Dosage: APPROXIMATELY 50 TABLETS A DAY OF 2 MG EACH, FOR MORE THAN 5 YEARS
     Route: 048

REACTIONS (3)
  - Ventricular arrhythmia [Recovered/Resolved]
  - Overdose [Recovered/Resolved]
  - Intentional product misuse [Recovered/Resolved]
